FAERS Safety Report 11419843 (Version 1)
Quarter: 2015Q3

REPORT INFORMATION
  Report Type: Spontaneous
  Country: US (occurrence: US)
  Receive Date: 20150826
  Receipt Date: 20150826
  Transmission Date: 20151125
  Serious: Yes (Hospitalization)
  Sender: FDA-Public Use
  Company Number: US-ABBVIE-15P-163-1448352-00

PATIENT
  Sex: Female
  Weight: 49.49 kg

DRUGS (5)
  1. SYNTHROID [Suspect]
     Active Substance: LEVOTHYROXINE SODIUM
     Indication: HYPOTHYROIDISM
     Route: 048
     Dates: start: 2005
  2. SYNTHROID [Suspect]
     Active Substance: LEVOTHYROXINE SODIUM
     Indication: HYPOTHYROIDISM
     Dosage: 1 TAB EVERY OTHER DAY ALT W/SYNTHROID 75MCG
     Route: 048
     Dates: start: 201507
  3. SYNTHROID [Suspect]
     Active Substance: LEVOTHYROXINE SODIUM
     Indication: HYPOTHYROIDISM
     Route: 048
     Dates: end: 200902
  4. SYNTHROID [Suspect]
     Active Substance: LEVOTHYROXINE SODIUM
     Dosage: 1 TAB EVERY OTHER DAY ALT W/SYNTHROID 50MCG
     Route: 048
     Dates: start: 201507
  5. SYNTHROID [Suspect]
     Active Substance: LEVOTHYROXINE SODIUM
     Route: 048
     Dates: start: 200902, end: 201507

REACTIONS (9)
  - Bronchitis [Recovered/Resolved]
  - Myocardial infarction [Recovered/Resolved]
  - Hypertension [Recovered/Resolved]
  - Rhinorrhoea [Not Recovered/Not Resolved]
  - Arterial occlusive disease [Recovered/Resolved]
  - Dyspnoea [Recovered/Resolved]
  - Blood cholesterol increased [Recovered/Resolved]
  - Weight gain poor [Not Recovered/Not Resolved]
  - Pneumonia [Recovered/Resolved]

NARRATIVE: CASE EVENT DATE: 2005
